FAERS Safety Report 13297486 (Version 1)
Quarter: 2017Q1

REPORT INFORMATION
  Report Type: Spontaneous
  Country: US (occurrence: US)
  Receive Date: 20170305
  Receipt Date: 20170305
  Transmission Date: 20170428
  Serious: Yes (Other)
  Sender: FDA-Public Use
  Company Number: None

PATIENT
  Age: 44 Year
  Sex: Male
  Weight: 56.25 kg

DRUGS (1)
  1. ONZETRA [Suspect]
     Active Substance: SUMATRIPTAN SUCCINATE
     Indication: MIGRAINE
     Dosage: QUANTITY:16 16 NOSEPIECE;OTHER ROUTE:BREATH POWERED INTRANASAL MEDICATION?
     Dates: start: 20170303, end: 20170303

REACTIONS (2)
  - Diarrhoea [None]
  - Headache [None]

NARRATIVE: CASE EVENT DATE: 20170303
